FAERS Safety Report 7253573-8 (Version None)
Quarter: 2011Q1

REPORT INFORMATION
  Report Type: 
  Country: None (occurrence: None)
  Receive Date: 20110129
  Receipt Date: 20100331
  Transmission Date: 20110831
  Serious: No
  Sender: FDA-Public Use
  Company Number: US-ABBOTT-10P-163-0635917-00

PATIENT
  Sex: Male
  Weight: 148 kg

DRUGS (14)
  1. FLAX SEED OIL [Concomitant]
     Indication: PRODUCT USED FOR UNKNOWN INDICATION
  2. COD LIVER OIL [Concomitant]
     Indication: PRODUCT USED FOR UNKNOWN INDICATION
  3. L-ARGININE [Concomitant]
     Indication: PRODUCT USED FOR UNKNOWN INDICATION
  4. GASTRO HEALTH [Concomitant]
     Indication: PRODUCT USED FOR UNKNOWN INDICATION
  5. ASCORBIC ACID [Concomitant]
     Indication: PRODUCT USED FOR UNKNOWN INDICATION
  6. CALCIUM [Concomitant]
     Indication: PRODUCT USED FOR UNKNOWN INDICATION
  7. GREEN TEA [Concomitant]
     Indication: PRODUCT USED FOR UNKNOWN INDICATION
  8. ELEUTHEROCOCCUS [Concomitant]
     Indication: PRODUCT USED FOR UNKNOWN INDICATION
  9. POTASSIUM [Concomitant]
     Indication: PRODUCT USED FOR UNKNOWN INDICATION
  10. HUMIRA [Suspect]
     Indication: PSORIASIS
     Route: 058
     Dates: start: 20090901
  11. TUMERIC [Concomitant]
     Indication: PRODUCT USED FOR UNKNOWN INDICATION
  12. MAGNESIUM [Concomitant]
     Indication: PRODUCT USED FOR UNKNOWN INDICATION
  13. GINGER ROOT [Concomitant]
     Indication: PRODUCT USED FOR UNKNOWN INDICATION
  14. METHYLSULFONYLMETHANE [Concomitant]
     Indication: PRODUCT USED FOR UNKNOWN INDICATION

REACTIONS (4)
  - INJECTION SITE HAEMORRHAGE [None]
  - BACK PAIN [None]
  - BACK INJURY [None]
  - INJECTION SITE PAIN [None]
